FAERS Safety Report 12607829 (Version 1)
Quarter: 2016Q3

REPORT INFORMATION
  Report Type: Spontaneous
  Country: PL (occurrence: PL)
  Receive Date: 20160729
  Receipt Date: 20160729
  Transmission Date: 20161109
  Serious: Yes (Other)
  Sender: FDA-Public Use
  Company Number: PL-MYLANLABS-2015M1043566

PATIENT

DRUGS (1)
  1. FONDAPARINUX [Suspect]
     Active Substance: FONDAPARINUX
     Indication: HAEMODIALYSIS
     Dosage: DOSE RANGE FROM 1.5 MG TO 2.5MG
     Route: 042

REACTIONS (3)
  - Thrombosis [Unknown]
  - Off label use [Unknown]
  - Venous thrombosis limb [Unknown]
